FAERS Safety Report 9365862 (Version 1)
Quarter: 2013Q2

REPORT INFORMATION
  Report Type: Report from Study
  Country: IN (occurrence: IN)
  Receive Date: 20130625
  Receipt Date: 20130625
  Transmission Date: 20140414
  Serious: Yes (Death, Hospitalization, Other)
  Sender: FDA-Public Use
  Company Number: PHHY2013IN064745

PATIENT
  Age: 72 Year
  Sex: Male

DRUGS (2)
  1. ACLASTA [Suspect]
     Indication: OSTEOPOROSIS
     Dosage: 5 MG/ 100 ML/ YEAR
     Route: 042
     Dates: start: 20120621
  2. ANTIHYPERTENSIVE DRUGS [Concomitant]
     Indication: HYPERTENSION

REACTIONS (7)
  - Death [Fatal]
  - Pneumonia [Unknown]
  - Nasopharyngitis [Unknown]
  - Neoplasm malignant [Recovered/Resolved]
  - Myelopathy [Recovered/Resolved]
  - Helminthic infection [Recovered/Resolved]
  - Drug ineffective [Unknown]
